FAERS Safety Report 7718919-2 (Version None)
Quarter: 2011Q3

REPORT INFORMATION
  Report Type: 
  Country: None (occurrence: None)
  Receive Date: 20110830
  Receipt Date: 20110823
  Transmission Date: 20111222
  Serious: Yes (Hospitalization)
  Sender: FDA-Public Use
  Company Number: US-TEVA-297687USA

PATIENT
  Age: 76 Year
  Sex: Male

DRUGS (3)
  1. ROSUVASTATIN [Concomitant]
  2. WARFARIN SODIUM [Suspect]
     Indication: ANTICOAGULANT THERAPY
     Dosage: 3 MILLIGRAM;
     Route: 048
  3. METFORMIN HYDROCHLORIDE [Concomitant]

REACTIONS (1)
  - BLOOD SODIUM DECREASED [None]
